FAERS Safety Report 7297785-6 (Version None)
Quarter: 2011Q1

REPORT INFORMATION
  Report Type: 
  Country: None (occurrence: None)
  Receive Date: 20110214
  Receipt Date: 20110214
  Transmission Date: 20110831
  Serious: Yes (Other)
  Sender: FDA-Public Use
  Company Number: None

PATIENT
  Age: 20 Year
  Sex: Female
  Weight: 54.4316 kg

DRUGS (1)
  1. CIPROFLOXACIN [Suspect]
     Indication: DIARRHOEA
     Dates: start: 20100226, end: 20100303

REACTIONS (15)
  - CONFUSIONAL STATE [None]
  - MYALGIA [None]
  - BONE PAIN [None]
  - WEIGHT DECREASED [None]
  - NAUSEA [None]
  - ABDOMINAL PAIN [None]
  - DIARRHOEA HAEMORRHAGIC [None]
  - PAIN [None]
  - PAIN IN EXTREMITY [None]
  - INFECTION PARASITIC [None]
  - FACIAL PAIN [None]
  - ARTHRITIS REACTIVE [None]
  - CONSTIPATION [None]
  - NERVOUS SYSTEM DISORDER [None]
  - MUSCLE TWITCHING [None]
